FAERS Safety Report 9129275 (Version 1)
Quarter: 2013Q1

REPORT INFORMATION
  Report Type: Spontaneous
  Country: US (occurrence: US)
  Receive Date: 20130228
  Receipt Date: 20130228
  Transmission Date: 20140127
  Serious: No
  Sender: FDA-Public Use
  Company Number: US-ABBOTT-13P-163-1046621-00

PATIENT
  Sex: Male

DRUGS (2)
  1. ANDROGEL [Suspect]
     Indication: BLOOD TESTOSTERONE DECREASED
     Dosage: 2 PUMPS DAILY
     Dates: start: 201110, end: 20121218
  2. ANDROGEL [Suspect]
     Dosage: 2 PUMPS DAILY
     Dates: start: 20121220

REACTIONS (3)
  - Haematocrit increased [Not Recovered/Not Resolved]
  - Polycythaemia [Recovered/Resolved]
  - Incorrect dose administered [Not Recovered/Not Resolved]
